FAERS Safety Report 14923580 (Version 2)
Quarter: 2018Q2

REPORT INFORMATION
  Report Type: Spontaneous
  Country: JP (occurrence: JP)
  Receive Date: 20180522
  Receipt Date: 20180528
  Transmission Date: 20180711
  Serious: Yes (Hospitalization)
  Sender: FDA-Public Use
  Company Number: JP-ASTELLAS-2018JP009067

PATIENT
  Age: 40 Year
  Sex: Male
  Weight: 57 kg

DRUGS (1)
  1. PROGRAF [Suspect]
     Active Substance: TACROLIMUS\TACROLIMUS ANHYDROUS
     Indication: IMMUNOSUPPRESSION
     Route: 065
     Dates: end: 201805

REACTIONS (2)
  - Cardio-respiratory arrest [Recovered/Resolved]
  - Off label use [Unknown]

NARRATIVE: CASE EVENT DATE: 201703
